FAERS Safety Report 5226634-2 (Version None)
Quarter: 2007Q1

REPORT INFORMATION
  Report Type: 
  Country: None (occurrence: None)
  Receive Date: 20070129
  Receipt Date: 20070117
  Transmission Date: 20070707
  Serious: Yes (Other)
  Sender: FDA-Public Use
  Company Number: 2007303748

PATIENT
  Sex: Female
  Weight: 62.1 kg

DRUGS (5)
  1. BENADRYL [Suspect]
     Dosage: ORAL
     Route: 048
  2. TYLENOL [Suspect]
     Dosage: ORAL
     Route: 048
  3. CALCIUM [Concomitant]
  4. FLORINEF [Concomitant]
  5. VITAMINS NOS (VITAMINS NOS) [Concomitant]

REACTIONS (3)
  - COLITIS ULCERATIVE [None]
  - EPISTAXIS [None]
  - RECTAL HAEMORRHAGE [None]
